FAERS Safety Report 5042797-6 (Version None)
Quarter: 2006Q2

REPORT INFORMATION
  Report Type: 
  Country: None (occurrence: None)
  Receive Date: 20060620
  Receipt Date: 20060607
  Transmission Date: 20061013
  Serious: Yes (Other)
  Sender: FDA-Public Use
  Company Number: 200610165BBE

PATIENT
  Age: 44 Year
  Sex: Female

DRUGS (1)
  1. GAMUNEX [Suspect]
     Dosage: 100 ML, INTRAVENOUS
     Route: 042

REACTIONS (6)
  - CHILLS [None]
  - DRUG SPECIFIC ANTIBODY PRESENT [None]
  - FLUSHING [None]
  - HAEMOGLOBIN DECREASED [None]
  - HEADACHE [None]
  - PYREXIA [None]
